FAERS Safety Report 19681746 (Version 1)
Quarter: 2021Q3

REPORT INFORMATION
  Report Type: Spontaneous
  Country: FR (occurrence: FR)
  Receive Date: 20210810
  Receipt Date: 20210810
  Transmission Date: 20211014
  Serious: Yes (Other)
  Sender: FDA-Public Use
  Company Number: FR-DSJP-DSE-2021-124842

PATIENT
  Age: 51 Year
  Sex: Female
  Weight: 58 kg

DRUGS (4)
  1. TRASTUZUMAB DERUXTECAN. [Suspect]
     Active Substance: TRASTUZUMAB DERUXTECAN
     Indication: BREAST CANCER METASTATIC
     Dosage: 5.4 MG/KG, CYCLIC, ONCE IN 3 WEEK CYCLE
     Dates: start: 202102, end: 202102
  2. PERINDOPRIL [Concomitant]
     Active Substance: PERINDOPRIL
     Indication: HYPERTENSION
     Dosage: UNK
     Route: 048
  3. LERCANIDIPINE [Concomitant]
     Active Substance: LERCANIDIPINE
     Indication: HYPERTENSION
     Dosage: UNK
     Route: 048
  4. TRASTUZUMAB DERUXTECAN. [Suspect]
     Active Substance: TRASTUZUMAB DERUXTECAN
     Dosage: 4.4 MG/KG, CYCLIC, ONCE IN 3 WEEK CYCLE
     Dates: start: 20210315

REACTIONS (5)
  - Weight decreased [Unknown]
  - Decreased appetite [Unknown]
  - Hyperthyroidism [Not Recovered/Not Resolved]
  - Haematotoxicity [Unknown]
  - Nausea [Unknown]

NARRATIVE: CASE EVENT DATE: 202102
